FAERS Safety Report 8034385-4 (Version None)
Quarter: 2012Q1

REPORT INFORMATION
  Report Type: 
  Country: None (occurrence: None)
  Receive Date: 20120110
  Receipt Date: 20120104
  Transmission Date: 20120608
  Serious: Yes (Other)
  Sender: FDA-Public Use
  Company Number: HU-PFIZER INC-2012003269

PATIENT
  Sex: Male

DRUGS (4)
  1. CIPROFLOXACIN HCL [Suspect]
     Indication: ANTIBIOTIC PROPHYLAXIS
  2. FLUCONAZOLE [Suspect]
     Indication: ANTIBIOTIC PROPHYLAXIS
  3. METHYLPREDNISOLONE [Suspect]
     Indication: IMMUNOSUPPRESSION
  4. SIROLIMUS [Suspect]
     Indication: IMMUNOSUPPRESSION

REACTIONS (4)
  - SEPSIS [None]
  - CANDIDA SEPSIS [None]
  - CYTOMEGALOVIRUS INFECTION [None]
  - ASPERGILLOSIS [None]
